FAERS Safety Report 13447453 (Version 1)
Quarter: 2017Q2

REPORT INFORMATION
  Report Type: Spontaneous
  Country: US (occurrence: US)
  Receive Date: 20170417
  Receipt Date: 20170417
  Transmission Date: 20170830
  Serious: No
  Sender: FDA-Public Use
  Company Number: US-HARRIS PHARMACEUTICAL-2016HAR00009

PATIENT
  Sex: Female

DRUGS (1)
  1. FLUCONAZOLE. [Suspect]
     Active Substance: FLUCONAZOLE

REACTIONS (2)
  - Abdominal pain [Unknown]
  - Cystitis [Unknown]

NARRATIVE: CASE EVENT DATE: 20160420
